FAERS Safety Report 4768332-5 (Version None)
Quarter: 2005Q3

REPORT INFORMATION
  Report Type: 
  Country: None (occurrence: None)
  Receive Date: 20050906
  Receipt Date: 20050712
  Transmission Date: 20060218
  Serious: No
  Sender: FDA-Public Use
  Company Number: 2005-BP-11690BP

PATIENT
  Age: 66 Year
  Sex: Male

DRUGS (4)
  1. SPIRIVA [Suspect]
     Indication: CHRONIC OBSTRUCTIVE PULMONARY DISEASE
     Dosage: 18 MG (18 MCG, QD), IH
     Route: 055
     Dates: start: 20050301
  2. ADVAIR DISKUS 100/50 [Concomitant]
  3. SENEQUON [Concomitant]
  4. CLONOPIN [Concomitant]

REACTIONS (2)
  - DERMATITIS [None]
  - RASH [None]
